FAERS Safety Report 22136015 (Version 1)
Quarter: 2023Q1

REPORT INFORMATION
  Report Type: Report from Study
  Country: US (occurrence: US)
  Receive Date: 20230324
  Receipt Date: 20230324
  Transmission Date: 20230418
  Serious: Yes (Hospitalization, Other)
  Sender: FDA-Public Use
  Company Number: US-002147023-NVSC2023US059374

PATIENT
  Age: 14 Month
  Sex: Male

DRUGS (3)
  1. TRAMETINIB [Suspect]
     Active Substance: TRAMETINIB
     Indication: Glioma
     Dosage: UNK (FIRST CYCLE)
     Route: 065
     Dates: start: 20221115
  2. TRAMETINIB [Suspect]
     Active Substance: TRAMETINIB
     Dosage: UNK (CYCLE 3)
     Route: 065
     Dates: start: 20230207
  3. TRAMETINIB [Suspect]
     Active Substance: TRAMETINIB
     Dosage: UNK
     Route: 065
     Dates: end: 20230307

REACTIONS (10)
  - Weight decreased [Unknown]
  - Malnutrition [Unknown]
  - Decreased appetite [Unknown]
  - Hypokalaemia [Unknown]
  - Anaemia [Unknown]
  - Hypocalcaemia [Unknown]
  - Hypoalbuminaemia [Unknown]
  - Vomiting [Unknown]
  - Viral upper respiratory tract infection [Unknown]
  - Viral infection [Unknown]

NARRATIVE: CASE EVENT DATE: 20230110
